FAERS Safety Report 7990632-6 (Version None)
Quarter: 2011Q4

REPORT INFORMATION
  Report Type: 
  Country: None (occurrence: None)
  Receive Date: 20111219
  Receipt Date: 20110829
  Transmission Date: 20120403
  Serious: No
  Sender: FDA-Public Use
  Company Number: US-ASTRAZENECA-2011SE38986

PATIENT
  Age: 61 Year
  Sex: Female

DRUGS (4)
  1. ATACAND [Suspect]
     Route: 048
  2. COREG [Concomitant]
  3. ATACAND HCT [Suspect]
     Dosage: TOTAL DAILY DOSE 32+12.5 MG
     Route: 048
  4. CRESTOR [Suspect]
     Route: 048

REACTIONS (3)
  - MALAISE [None]
  - DRUG DOSE OMISSION [None]
  - ADVERSE EVENT [None]
